FAERS Safety Report 10963587 (Version 1)
Quarter: 2015Q1

REPORT INFORMATION
  Report Type: Spontaneous
  Country: US (occurrence: US)
  Receive Date: 20150327
  Receipt Date: 20150327
  Transmission Date: 20150721
  Serious: Yes (Hospitalization)
  Sender: FDA-Public Use
  Company Number: US-ASTRAZENECA-2015SE27275

PATIENT
  Age: 8 Month
  Sex: Male
  Weight: 6.1 kg

DRUGS (1)
  1. SYNAGIS [Suspect]
     Active Substance: PALIVIZUMAB
     Indication: ANTIVIRAL PROPHYLAXIS
     Dosage: 100 MG/ML; 15 MG/KG; MONTHLY
     Route: 030
     Dates: start: 20141215

REACTIONS (3)
  - Body temperature increased [Recovering/Resolving]
  - Bradycardia [Unknown]
  - Teething [Recovering/Resolving]

NARRATIVE: CASE EVENT DATE: 20150318
